FAERS Safety Report 8947111 (Version 2)
Quarter: 2012Q4

REPORT INFORMATION
  Report Type: 
  Country: US (occurrence: US)
  Receive Date: 20121205
  Receipt Date: 20121226
  Transmission Date: 20130627
  Serious: No
  Sender: FDA-Public Use
  Company Number: US-PFIZER INC-2012301357

PATIENT
  Age: 20 Year
  Sex: Female

DRUGS (3)
  1. ZOLOFT [Suspect]
     Indication: DEPRESSION
     Dosage: 50 mg, 1x/day
     Route: 048
     Dates: start: 20120607, end: 20121010
  2. ZOLOFT [Suspect]
     Dosage: 100 mg, 1x/day
     Route: 048
     Dates: start: 20121011
  3. NECON 1/35 [Concomitant]
     Dosage: UNK

REACTIONS (1)
  - Abdominal pain [Recovered/Resolved]
